FAERS Safety Report 5033372-8 (Version None)
Quarter: 2006Q2

REPORT INFORMATION
  Report Type: 
  Country: None (occurrence: None)
  Receive Date: 20060620
  Receipt Date: 20060607
  Transmission Date: 20061013
  Serious: Yes (Hospitalization)
  Sender: FDA-Public Use
  Company Number: 2006073832

PATIENT
  Age: 32 Year
  Sex: Male

DRUGS (2)
  1. METHYLPREDNISOLONE [Suspect]
     Indication: OPTIC NEURITIS RETROBULBAR
     Dosage: 1 GRAM
     Dates: start: 20050101
  2. PREDNISOLONE [Concomitant]

REACTIONS (1)
  - HEPATITIS B [None]
